FAERS Safety Report 13346086 (Version 2)
Quarter: 2017Q1

REPORT INFORMATION
  Report Type: Spontaneous
  Country: US (occurrence: US)
  Receive Date: 20170317
  Receipt Date: 20170320
  Transmission Date: 20170428
  Serious: No
  Sender: FDA-Public Use
  Company Number: US-BAYER-2017-046659

PATIENT
  Sex: Female

DRUGS (2)
  1. ADVIL [Concomitant]
     Active Substance: IBUPROFEN
     Dosage: UNK
  2. CLARITIN-D 24 HOUR [Suspect]
     Active Substance: LORATADINE\PSEUDOEPHEDRINE SULFATE
     Indication: OTORRHOEA
     Dosage: 1 DF, UNK
     Route: 048

REACTIONS (5)
  - Heart rate increased [Unknown]
  - Drug ineffective [Unknown]
  - Otorrhoea [Unknown]
  - Insomnia [Unknown]
  - Product use issue [Unknown]
